FAERS Safety Report 7587267-6 (Version None)
Quarter: 2011Q3

REPORT INFORMATION
  Report Type: 
  Country: None (occurrence: None)
  Receive Date: 20110701
  Receipt Date: 20110623
  Transmission Date: 20111222
  Serious: Yes (Hospitalization, Other)
  Sender: FDA-Public Use
  Company Number: US-ABBOTT-11P-163-0708084-00

PATIENT
  Sex: Male
  Weight: 91.708 kg

DRUGS (9)
  1. DEPAKENE [Suspect]
     Dosage: DOSE INCREASED TO 4000MG/DAY
     Dates: end: 20060101
  2. CELEXA [Concomitant]
     Indication: BIPOLAR DISORDER
  3. SEROQUEL [Concomitant]
     Indication: BIPOLAR DISORDER
  4. DEPAKENE [Suspect]
     Dates: start: 20070101, end: 20100101
  5. PHENOBARBITAL TAB [Concomitant]
     Indication: GRAND MAL CONVULSION
     Dates: start: 19800101
  6. SEOQUIL [Concomitant]
     Indication: PRODUCT USED FOR UNKNOWN INDICATION
     Dates: start: 20060101
  7. DEPAKENE [Suspect]
     Indication: CONVULSION PROPHYLAXIS
     Dosage: UNKNOWN DOSE WHEN STARTED
     Dates: start: 19820101
  8. DEPAKENE [Suspect]
     Dates: start: 20060101, end: 20070101
  9. MYSOLINE [Concomitant]
     Indication: GRAND MAL CONVULSION
     Dates: start: 19800101

REACTIONS (48)
  - COGNITIVE DISORDER [None]
  - CONVERSION DISORDER [None]
  - ANXIETY [None]
  - FAECAL INCONTINENCE [None]
  - OSTEOARTHRITIS [None]
  - INTRAOCULAR LENS IMPLANT [None]
  - INTERVERTEBRAL DISC DISORDER [None]
  - HYPOTHYROIDISM [None]
  - BLOOD LACTIC ACID INCREASED [None]
  - PANCREATITIS [None]
  - ADVERSE DRUG REACTION [None]
  - ANGER [None]
  - DEAFNESS BILATERAL [None]
  - PRURITUS [None]
  - N-ACETYLGLUTAMATE SYNTHASE DEFICIENCY [None]
  - VITAMIN D DECREASED [None]
  - HYPERAMMONAEMIC ENCEPHALOPATHY [None]
  - AGITATION [None]
  - RENAL FAILURE [None]
  - BODY TEMPERATURE DECREASED [None]
  - CEREBRAL ATROPHY [None]
  - KETONURIA [None]
  - TREMOR [None]
  - NICOTINE DEPENDENCE [None]
  - FRONTOTEMPORAL DEMENTIA [None]
  - ACIDOSIS [None]
  - HYPERLIPIDAEMIA [None]
  - HYPERAMMONAEMIA [None]
  - ATELECTASIS [None]
  - BIPOLAR DISORDER [None]
  - OEDEMA PERIPHERAL [None]
  - ALCOHOL USE [None]
  - COMA [None]
  - OBSESSIVE-COMPULSIVE DISORDER [None]
  - DIABETES MELLITUS INADEQUATE CONTROL [None]
  - CATARACT [None]
  - PUPILS UNEQUAL [None]
  - DEMENTIA [None]
  - ABNORMAL BEHAVIOUR [None]
  - VERBAL ABUSE [None]
  - GASTROOESOPHAGEAL REFLUX DISEASE [None]
  - CEREBELLAR ATROPHY [None]
  - THROMBOCYTOPENIA [None]
  - GENERAL PHYSICAL HEALTH DETERIORATION [None]
  - ASTHENIA [None]
  - CARDIAC FAILURE CONGESTIVE [None]
  - SLEEP APNOEA SYNDROME [None]
  - SINUSITIS [None]
